FAERS Safety Report 6923174-7 (Version None)
Quarter: 2010Q3

REPORT INFORMATION
  Report Type: 
  Country: None (occurrence: None)
  Receive Date: 20100813
  Receipt Date: 20100806
  Transmission Date: 20110219
  Serious: Yes (Other)
  Sender: FDA-Public Use
  Company Number: US-BAYER-201030154NA

PATIENT
  Sex: Male

DRUGS (3)
  1. AVELOX [Suspect]
     Indication: URINARY TRACT INFECTION
     Dosage: TREATMENT BEGUN ABOUT 8-10 YEARS PRIOR TO REPORT - IT WAS INTERRUPTED AFTER 4 TO 5 DAYS LATTER
     Route: 048
  2. BACLOFEN [Concomitant]
  3. OXYBUTNIN [Concomitant]

REACTIONS (1)
  - HEART RATE IRREGULAR [None]
